FAERS Safety Report 17582282 (Version 2)
Quarter: 2020Q2

REPORT INFORMATION
  Report Type: Spontaneous
  Country: US (occurrence: US)
  Receive Date: 20200325
  Receipt Date: 20200616
  Transmission Date: 20200713
  Serious: No
  Sender: FDA-Public Use
  Company Number: NVSC2020US082777

PATIENT
  Sex: Male

DRUGS (1)
  1. ZARXIO [Suspect]
     Active Substance: FILGRASTIM-SNDZ
     Indication: PRODUCT USED FOR UNKNOWN INDICATION
     Dosage: UNK (300/0.5 MCG/ML)
     Route: 065

REACTIONS (3)
  - Syringe issue [Unknown]
  - Product dose omission [Unknown]
  - Product packaging issue [Unknown]
